FAERS Safety Report 18805290 (Version 2)
Quarter: 2023Q1

REPORT INFORMATION
  Report Type: Spontaneous
  Country: US (occurrence: US)
  Receive Date: 20210128
  Receipt Date: 20230124
  Transmission Date: 20230417
  Serious: Yes (Death, Other)
  Sender: FDA-Public Use
  Company Number: US-PFIZER INC-2021072369

PATIENT
  Age: 80 Year
  Sex: Female

DRUGS (2)
  1. VYNDAMAX [Suspect]
     Active Substance: TAFAMIDIS
     Dosage: 61 MG, 1X/DAY
  2. MEGACE [Concomitant]
     Active Substance: MEGESTROL ACETATE

REACTIONS (8)
  - Death [Fatal]
  - Atrial fibrillation [Unknown]
  - Heart rate increased [Unknown]
  - Weight increased [Unknown]
  - Increased appetite [Unknown]
  - Dry skin [Unknown]
  - Pruritus [Unknown]
  - Peripheral swelling [Unknown]

NARRATIVE: CASE EVENT DATE: 20201012
